FAERS Safety Report 5217919-4 (Version None)
Quarter: 2007Q1

REPORT INFORMATION
  Report Type: 
  Country: None (occurrence: None)
  Receive Date: 20061130
  Receipt Date: 20060731
  Transmission Date: 20070707
  Serious: Yes (Hospitalization)
  Sender: FDA-Public Use
  Company Number: US200608000506

PATIENT
  Age: 50 Year
  Sex: Female
  Weight: 81.6 kg

DRUGS (4)
  1. ZYPREXA [Suspect]
     Dosage: SEE IMAGE
     Dates: start: 20030401, end: 20040101
  2. ZYPREXA [Suspect]
     Dosage: SEE IMAGE
     Dates: start: 20040121, end: 20040526
  3. CITALOPRAM HYDROBROMIDE [Concomitant]
  4. MICARDIS [Concomitant]

REACTIONS (1)
  - DIABETES MELLITUS [None]
